FAERS Safety Report 8145119-7 (Version None)
Quarter: 2012Q1

REPORT INFORMATION
  Report Type: 
  Country: None (occurrence: None)
  Receive Date: 20120217
  Receipt Date: 20120214
  Transmission Date: 20120608
  Serious: Yes (Life-Threatening, Hospitalization)
  Sender: FDA-Public Use
  Company Number: PHHY2012FR012994

PATIENT
  Age: 73 Year
  Sex: Female

DRUGS (8)
  1. VENTOLIN [Concomitant]
     Indication: ASTHMA
  2. PULMICORT-100 [Concomitant]
  3. ROCEPHIN [Concomitant]
     Indication: BRONCHITIS
  4. BRONCHOKOD [Concomitant]
     Indication: BRONCHITIS
     Dosage: UNK
  5. FUNGIZONE [Concomitant]
  6. MEDROL [Concomitant]
     Dosage: UNK
  7. FLUTICASONE PROPIONATE/SALMETEROL [Concomitant]
     Indication: ASTHMA
     Dosage: UNK
  8. ONBREZ [Suspect]
     Indication: CHRONIC OBSTRUCTIVE PULMONARY DISEASE
     Dosage: 300 UG, QD
     Dates: start: 20111101

REACTIONS (1)
  - CARDIAC ARREST [None]
